FAERS Safety Report 12317353 (Version 1)
Quarter: 2016Q2

REPORT INFORMATION
  Report Type: Spontaneous
  Country: US (occurrence: US)
  Receive Date: 20160429
  Receipt Date: 20160429
  Transmission Date: 20160815
  Serious: No
  Sender: FDA-Public Use
  Company Number: US-PFIZER INC-2016188688

PATIENT
  Age: 71 Year
  Sex: Female

DRUGS (1)
  1. AXITINIB [Suspect]
     Active Substance: AXITINIB
     Dosage: UNK

REACTIONS (2)
  - Pain in extremity [Unknown]
  - Peripheral swelling [Unknown]

NARRATIVE: CASE EVENT DATE: 2015
